FAERS Safety Report 9306102 (Version 2)
Quarter: 2013Q2

REPORT INFORMATION
  Report Type: Spontaneous
  Country: SI (occurrence: SI)
  Receive Date: 20130523
  Receipt Date: 20130625
  Transmission Date: 20140414
  Serious: Yes (Hospitalization, Disabling)
  Sender: FDA-Public Use
  Company Number: SI-ELI_LILLY_AND_COMPANY-SI201305005066

PATIENT
  Age: 59 Year
  Sex: Female

DRUGS (1)
  1. ZYPADHERA [Suspect]
     Indication: SCHIZOPHRENIA
     Dosage: 300 MG, MONTHLY (1/M)
     Route: 030
     Dates: start: 20120831

REACTIONS (7)
  - Dizziness [Recovered/Resolved]
  - Nausea [Recovered/Resolved]
  - Sedation [Recovered/Resolved]
  - Dysarthria [Recovered/Resolved]
  - Akathisia [Recovered/Resolved]
  - Dyspnoea [Recovered/Resolved]
  - Anxiety [Recovered/Resolved]
